FAERS Safety Report 16754718 (Version 1)
Quarter: 2019Q4

REPORT INFORMATION
  Report Type: Spontaneous
  Country: US (occurrence: US)
  Receive Date: 20190828
  Receipt Date: 20190828
  Transmission Date: 20200122
  Serious: Yes (Other)
  Sender: FDA-Public Use
  Company Number: None

PATIENT
  Age: 21 Year
  Sex: Female
  Weight: 85.5 kg

DRUGS (1)
  1. CIPROFLOXACIN. [Suspect]
     Active Substance: CIPROFLOXACIN
     Indication: PILONIDAL CYST
     Dosage: ?          QUANTITY:1 TABLET(S);?
     Route: 048
     Dates: start: 20190823, end: 20190827

REACTIONS (7)
  - Nausea [None]
  - Vomiting [None]
  - Neck pain [None]
  - Muscular weakness [None]
  - Musculoskeletal pain [None]
  - Back pain [None]
  - Headache [None]

NARRATIVE: CASE EVENT DATE: 20190823
